FAERS Safety Report 5357714-9 (Version None)
Quarter: 2007Q2

REPORT INFORMATION
  Report Type: 
  Country: None (occurrence: None)
  Receive Date: 20070614
  Receipt Date: 20070607
  Transmission Date: 20071010
  Serious: Yes (Hospitalization, Other)
  Sender: FDA-Public Use
  Company Number: US-PFIZER INC-2005052263

PATIENT
  Sex: Male
  Weight: 65.8 kg

DRUGS (2)
  1. CELEBREX [Suspect]
     Indication: BACK PAIN
     Route: 048
  2. CELEBREX [Suspect]
     Indication: ARTHRITIS

REACTIONS (4)
  - DEPRESSION [None]
  - GAIT DISTURBANCE [None]
  - HEART INJURY [None]
  - MYOCARDIAL INFARCTION [None]
